FAERS Safety Report 4737412-2 (Version None)
Quarter: 2005Q3

REPORT INFORMATION
  Report Type: 
  Country: None (occurrence: None)
  Receive Date: 20050805
  Receipt Date: 20041208
  Transmission Date: 20060218
  Serious: Yes (Death, Hospitalization, Other)
  Sender: FDA-Public Use
  Company Number: USA-2005-0020926

PATIENT
  Age: 2 Year
  Sex: Female

DRUGS (1)
  1. OXYCODONE HYDROCHLORIDE(SIMILAR TO NDA 20-533)(OXYCODONE HYDROCHLORIDE [Suspect]

REACTIONS (4)
  - CARDIO-RESPIRATORY ARREST [None]
  - GAIT DISTURBANCE [None]
  - GENERAL SYMPTOM [None]
  - LOSS OF CONSCIOUSNESS [None]
